FAERS Safety Report 19460121 (Version 2)
Quarter: 2021Q3

REPORT INFORMATION
  Report Type: Spontaneous
  Country: GB (occurrence: GB)
  Receive Date: 20210625
  Receipt Date: 20210702
  Transmission Date: 20211014
  Serious: Yes (Other)
  Sender: FDA-Public Use
  Company Number: GB-OCTA-HAPL02921GB

PATIENT
  Age: 56 Year
  Sex: Male
  Weight: 128 kg

DRUGS (1)
  1. ASTRAZENECA COVID?19 VACCINE [Suspect]
     Active Substance: AZD-1222
     Indication: COVID-19 IMMUNISATION
     Dosage: DOSE 1
     Dates: start: 20210319, end: 20210319

REACTIONS (8)
  - Urinary tract infection [Recovered/Resolved]
  - Dyspnoea [Unknown]
  - Haemorrhage [Recovered/Resolved]
  - Lower respiratory tract infection [Recovered/Resolved]
  - Pulmonary embolism [Recovering/Resolving]
  - Dizziness [Recovered/Resolved]
  - Chest pain [Recovered/Resolved]
  - Activated partial thromboplastin time prolonged [Recovered/Resolved]

NARRATIVE: CASE EVENT DATE: 20210415
